FAERS Safety Report 12775407 (Version 1)
Quarter: 2016Q3

REPORT INFORMATION
  Report Type: Spontaneous
  Country: US (occurrence: US)
  Receive Date: 20160922
  Receipt Date: 20160922
  Transmission Date: 20161109
  Serious: Yes (Other)
  Sender: FDA-Public Use
  Company Number: None

PATIENT
  Age: 35 Year
  Sex: Female
  Weight: 54 kg

DRUGS (1)
  1. METRONIDAZOLE 500 MG ACTAVIS PHARMA [Suspect]
     Active Substance: METRONIDAZOLE
     Indication: GASTROINTESTINAL INFLAMMATION
     Dosage: 1 TABLET 3 TIMES A DAY ORAL
     Route: 048
     Dates: start: 20160830, end: 20160901

REACTIONS (5)
  - Confusional state [None]
  - Dysarthria [None]
  - Fatigue [None]
  - Hallucination [None]
  - Somnolence [None]

NARRATIVE: CASE EVENT DATE: 20160901
